FAERS Safety Report 12965201 (Version 1)
Quarter: 2016Q4

REPORT INFORMATION
  Report Type: Spontaneous
  Country: US (occurrence: US)
  Receive Date: 20161122
  Receipt Date: 20161122
  Transmission Date: 20170207
  Serious: Yes (Hospitalization)
  Sender: FDA-Public Use
  Company Number: US-MALLINCKRODT-T201605932

PATIENT
  Age: 69 Year
  Sex: Female

DRUGS (1)
  1. DEXTROAMPHETAMINE SULFATE. [Suspect]
     Active Substance: DEXTROAMPHETAMINE SULFATE
     Indication: PRODUCT USED FOR UNKNOWN INDICATION
     Dosage: 30 MG, QD
     Route: 048
     Dates: start: 20161017, end: 2016

REACTIONS (7)
  - Fall [Unknown]
  - Confusional state [Unknown]
  - Hypoaesthesia [Unknown]
  - Dizziness [Unknown]
  - Product quality issue [Unknown]
  - Contusion [Unknown]
  - Product substitution issue [Unknown]

NARRATIVE: CASE EVENT DATE: 201610
